FAERS Safety Report 9749955 (Version 1)
Quarter: 2013Q4

REPORT INFORMATION
  Report Type: Report from Study
  Country: US (occurrence: US)
  Receive Date: 20131212
  Receipt Date: 20131212
  Transmission Date: 20140711
  Serious: Yes (Hospitalization)
  Sender: FDA-Public Use
  Company Number: PHHO2013US012649

PATIENT
  Age: 68 Year
  Sex: Female
  Weight: 75.6 kg

DRUGS (13)
  1. AFINITOR [Suspect]
     Indication: BREAST CANCER METASTATIC
     Dosage: 5 MG, QD
     Route: 048
     Dates: start: 20130625
  2. CGS 20267 [Suspect]
     Indication: BREAST CANCER METASTATIC
     Dosage: 2.5 MG, QD
     Route: 048
     Dates: start: 20130625, end: 20130915
  3. LAPATINIB [Suspect]
     Indication: BREAST CANCER METASTATIC
     Dosage: 1250 MG, QD
     Route: 048
     Dates: start: 20130625, end: 20130915
  4. NORVASC [Concomitant]
     Dosage: 10 MG, QD
     Route: 048
  5. CRESTOR [Concomitant]
     Dosage: 10 MG, QD
     Route: 048
  6. ASACOL [Concomitant]
     Dosage: 400 MG, BID
     Route: 048
  7. AZULFIDINE [Concomitant]
     Dosage: 500 MG, BID
     Route: 048
  8. LOPRESSOR [Concomitant]
     Dosage: 50 MG, QD
     Route: 048
  9. HYZAAR [Concomitant]
     Dosage: 50-12.5 MG TABLET QD
     Route: 048
  10. ASPIRIN [Concomitant]
     Dosage: 325 MG, QD
     Route: 048
  11. OSCAL [Concomitant]
     Dosage: 600 MG + D 400 MG QD
     Route: 048
  12. VITAMIN D 2000 [Concomitant]
     Dosage: 2000 MG, QD
     Route: 048
  13. LIALDA [Concomitant]
     Dosage: 1.2 MG, QD
     Route: 048

REACTIONS (3)
  - Nausea [Unknown]
  - Abdominal discomfort [Unknown]
  - Dizziness [Unknown]
